FAERS Safety Report 18772568 (Version 1)
Quarter: 2021Q1

REPORT INFORMATION
  Report Type: Spontaneous
  Country: US (occurrence: US)
  Receive Date: 20210121
  Receipt Date: 20210121
  Transmission Date: 20210419
  Serious: Yes (Death)
  Sender: FDA-Public Use
  Company Number: None

PATIENT
  Age: 53 Year
  Sex: Male
  Weight: 123 kg

DRUGS (21)
  1. BARICITINIB. [Suspect]
     Active Substance: BARICITINIB
     Indication: COVID-19
     Dates: start: 20210107, end: 20210115
  2. ASPIRIN 81 MG DAILY [Concomitant]
     Dates: start: 20210103, end: 20210115
  3. FENTANYL INFUSION [Concomitant]
     Active Substance: FENTANYL
     Dates: start: 20210114, end: 20210115
  4. CHLORHEXIDINE 15 ML BID [Concomitant]
     Dates: start: 20210114, end: 20210115
  5. PROPOFOL INFUSION [Concomitant]
     Active Substance: PROPOFOL
     Dates: start: 20210114, end: 20210115
  6. LOVENOX 65 MG SUBQ Q12H [Concomitant]
     Dates: start: 20210106, end: 20210115
  7. SLIDING SCALE INSULIN [Concomitant]
     Active Substance: INSULIN NOS
     Dates: start: 20210107, end: 20210115
  8. DOBUTAMINE INFUSION [Concomitant]
     Dates: start: 20210115
  9. DEXTROSE 5% INFUSION [Concomitant]
     Dates: start: 20210114, end: 20210115
  10. CEFEPIME 2G Q12H [Concomitant]
     Dates: start: 20210115, end: 20210115
  11. VASPOPRESSIN INFUSION [Concomitant]
     Dates: start: 20210115
  12. ALTEPLASE 10 MG IV BOLUS [Concomitant]
     Dates: start: 20210115
  13. DEXAMETHASONE 10 MG IV DAILY [Concomitant]
     Dates: start: 20210111, end: 20210115
  14. PROTONIX 40 MG IV Q24H [Concomitant]
     Dates: start: 20210107, end: 20210115
  15. SODIUM BICARB 8.4%, 50MEQ X1 [Concomitant]
     Dates: start: 20210115
  16. INHALED FLOLAN [Concomitant]
     Dates: start: 20210115
  17. TITRATED MIDAZOLAM DRIP [Concomitant]
     Dates: start: 20210114, end: 20210115
  18. EPINEPHRINE INFUSION [Concomitant]
     Active Substance: EPINEPHRINE
     Dates: start: 20210115
  19. PRECEDEX DRIP [Concomitant]
     Dates: start: 20210111, end: 20210115
  20. NOREPINEPHRINE INFUSION [Concomitant]
     Active Substance: NOREPINEPHRINE
     Dates: start: 20210114, end: 20210115
  21. ROCURONIUM INFUSION [Concomitant]
     Dates: start: 20210115

REACTIONS (3)
  - COVID-19 pneumonia [None]
  - Shock [None]
  - Right ventricular failure [None]

NARRATIVE: CASE EVENT DATE: 20210115
